FAERS Safety Report 23322180 (Version 1)
Quarter: 2023Q4

REPORT INFORMATION
  Report Type: Spontaneous
  Country: FR (occurrence: FR)
  Receive Date: 20231220
  Receipt Date: 20231220
  Transmission Date: 20240109
  Serious: Yes (Hospitalization)
  Sender: FDA-Public Use
  Company Number: None

PATIENT
  Age: 23 Month
  Sex: Female
  Weight: 13 kg

DRUGS (2)
  1. DOXORUBICIN HYDROCHLORIDE [Suspect]
     Active Substance: DOXORUBICIN HYDROCHLORIDE
     Indication: Atypical teratoid/rhabdoid tumour of CNS
     Dosage: 20 ML OR ABOUT 1.2 MG
     Route: 042
     Dates: start: 20231111
  2. METHOTREXATE [Concomitant]
     Active Substance: METHOTREXATE
     Indication: Atypical teratoid/rhabdoid tumour of CNS
     Route: 037

REACTIONS (2)
  - Infusion site extravasation [Recovering/Resolving]
  - Infusion site oedema [Recovering/Resolving]

NARRATIVE: CASE EVENT DATE: 20231111
